FAERS Safety Report 24389301 (Version 1)
Quarter: 2024Q4

REPORT INFORMATION
  Report Type: Report from Study
  Country: CA (occurrence: CA)
  Receive Date: 20241003
  Receipt Date: 20241003
  Transmission Date: 20250115
  Serious: Yes (Hospitalization)
  Sender: TAKEDA
  Company Number: CA-TAKEDA-2024TUS095869

PATIENT
  Sex: Female

DRUGS (7)
  1. VEDOLIZUMAB [Suspect]
     Active Substance: VEDOLIZUMAB
     Indication: Crohn^s disease
     Dosage: 300 MILLIGRAM
     Route: 042
     Dates: start: 20221019
  2. VEDOLIZUMAB [Suspect]
     Active Substance: VEDOLIZUMAB
     Indication: Crohn^s disease
     Dosage: 108 MILLIGRAM, Q2WEEKS
     Route: 058
     Dates: start: 20230103
  3. PREDNISONE [Concomitant]
     Active Substance: PREDNISONE
     Dosage: UNK MILLIGRAM
     Dates: start: 20120101
  4. PREDNISONE [Concomitant]
     Active Substance: PREDNISONE
     Dosage: 5 MILLIGRAM, QD
  5. MESALAMINE [Concomitant]
     Active Substance: MESALAMINE
     Dosage: 2 GRAM
     Dates: start: 20200801
  6. IMURAN [Concomitant]
     Active Substance: AZATHIOPRINE
     Dosage: 100 MILLIGRAM
     Dates: start: 20200801
  7. Salofalk [Concomitant]
     Dosage: 1000 MILLIGRAM
     Dates: start: 20190601

REACTIONS (2)
  - Cellulitis [Unknown]
  - Inappropriate schedule of product administration [Unknown]
